FAERS Safety Report 14966468 (Version 3)
Quarter: 2018Q3

REPORT INFORMATION
  Report Type: Spontaneous
  Country: US (occurrence: US)
  Receive Date: 20180604
  Receipt Date: 20180705
  Transmission Date: 20181010
  Serious: Yes (Hospitalization, Other)
  Sender: FDA-Public Use
  Company Number: US-ROCHE-2133704

PATIENT
  Age: 66 Year
  Sex: Male
  Weight: 84.44 kg

DRUGS (2)
  1. XOLAIR [Suspect]
     Active Substance: OMALIZUMAB
     Indication: ASTHMA
     Route: 058
     Dates: start: 20180418, end: 20180607
  2. XOLAIR [Suspect]
     Active Substance: OMALIZUMAB
     Indication: PULMONARY EOSINOPHILIA

REACTIONS (1)
  - Alveolitis allergic [Not Recovered/Not Resolved]

NARRATIVE: CASE EVENT DATE: 20180507
